FAERS Safety Report 6540229-X (Version None)
Quarter: 2010Q1

REPORT INFORMATION
  Report Type: 
  Country: None (occurrence: None)
  Receive Date: 20100115
  Receipt Date: 20100108
  Transmission Date: 20100710
  Serious: Yes (Hospitalization)
  Sender: FDA-Public Use
  Company Number: US-ABBOTT-10P-163-0618221-00

PATIENT
  Sex: Female

DRUGS (2)
  1. NIASPAN [Suspect]
     Indication: BLOOD TRIGLYCERIDES INCREASED
     Route: 048
     Dates: start: 20100103, end: 20100105
  2. NIASPAN [Suspect]
     Route: 048
     Dates: start: 20100108

REACTIONS (4)
  - BREAST PAIN [None]
  - CHEST DISCOMFORT [None]
  - PAIN IN JAW [None]
  - PARAESTHESIA [None]
